FAERS Safety Report 19706694 (Version 1)
Quarter: 2021Q3

REPORT INFORMATION
  Report Type: Spontaneous
  Country: US (occurrence: US)
  Receive Date: 20210816
  Receipt Date: 20210816
  Transmission Date: 20211014
  Serious: Yes (Death)
  Sender: FDA-Public Use
  Company Number: None

PATIENT
  Age: 65 Year
  Sex: Female
  Weight: 70.8 kg

DRUGS (12)
  1. CITALOPRAM [Concomitant]
     Active Substance: CITALOPRAM HYDROBROMIDE
     Dates: start: 20170406
  2. ISOSORBIDE DINITRATE. [Concomitant]
     Active Substance: ISOSORBIDE DINITRATE
     Dates: start: 20190529
  3. ASPIRIN. [Concomitant]
     Active Substance: ASPIRIN
     Dates: start: 20170301
  4. COLCHICINE. [Concomitant]
     Active Substance: COLCHICINE
     Dates: start: 20170228
  5. REGEN?COV [Suspect]
     Active Substance: CASIRIVIMAB\IMDEVIMAB
     Indication: COVID-19
     Dosage: ?          OTHER FREQUENCY:ONCE;?
     Route: 058
     Dates: start: 20210812, end: 20210812
  6. DEXAMETHASONE. [Concomitant]
     Active Substance: DEXAMETHASONE
     Dates: start: 20210808, end: 20210809
  7. TIZANIDINE. [Concomitant]
     Active Substance: TIZANIDINE
     Dates: start: 20190516
  8. SODIUM BICARBONATE. [Concomitant]
     Active Substance: SODIUM BICARBONATE
  9. ONDANSETRON [Concomitant]
     Active Substance: ONDANSETRON
     Dates: start: 20210808, end: 20210812
  10. ATORVASTATIN [Concomitant]
     Active Substance: ATORVASTATIN
     Dates: start: 20190507
  11. CARVEDILOL. [Concomitant]
     Active Substance: CARVEDILOL
     Dates: start: 20170322
  12. FAMOTIDINE. [Concomitant]
     Active Substance: FAMOTIDINE
     Dates: start: 20170322

REACTIONS (21)
  - Ventricular tachycardia [None]
  - Agitation [None]
  - Tachypnoea [None]
  - Dyspnoea [None]
  - Pulmonary embolism [None]
  - Cardio-respiratory arrest [None]
  - Mental status changes [None]
  - Transient ischaemic attack [None]
  - Infection [None]
  - Pneumonia [None]
  - Sepsis [None]
  - Electrolyte imbalance [None]
  - Accidental overdose [None]
  - Haemorrhage intracranial [None]
  - Hypotension [None]
  - Cerebrovascular accident [None]
  - Urinary tract infection [None]
  - Pulse absent [None]
  - Bradycardia [None]
  - Oedema [None]
  - Encephalopathy [None]

NARRATIVE: CASE EVENT DATE: 20210812
